FAERS Safety Report 7438320-9 (Version None)
Quarter: 2011Q2

REPORT INFORMATION
  Report Type: 
  Country: None (occurrence: None)
  Receive Date: 20110426
  Receipt Date: 20110412
  Transmission Date: 20111010
  Serious: Yes (Other)
  Sender: FDA-Public Use
  Company Number: FR-JNJFOC-20110406465

PATIENT
  Age: 43 Year
  Sex: Female

DRUGS (4)
  1. INFLIXIMAB [Suspect]
     Indication: COLITIS
     Route: 042
  2. CYCLOSPORINE [Suspect]
     Indication: COLITIS
  3. CORTICOSTEROIDS [Concomitant]
     Indication: COLITIS
  4. IMMUNOSUPPRESANT DRUGS [Concomitant]

REACTIONS (1)
  - CYTOMEGALOVIRUS COLITIS [None]
